FAERS Safety Report 10255318 (Version 1)
Quarter: 2014Q2

REPORT INFORMATION
  Report Type: Spontaneous
  Country: US (occurrence: US)
  Receive Date: 20140624
  Receipt Date: 20140624
  Transmission Date: 20141212
  Serious: Yes (Other)
  Sender: FDA-Public Use
  Company Number: US-PFIZER INC-2014169900

PATIENT
  Age: 36 Year
  Sex: Female
  Weight: 56.24 kg

DRUGS (1)
  1. CHANTIX [Suspect]
     Indication: SMOKING CESSATION THERAPY
     Dosage: UNK
     Route: 048
     Dates: start: 200904, end: 200904

REACTIONS (3)
  - Suicidal ideation [Unknown]
  - Drug hypersensitivity [Unknown]
  - Drug intolerance [Unknown]
